FAERS Safety Report 15271382 (Version 3)
Quarter: 2018Q3

REPORT INFORMATION
  Report Type: Spontaneous
  Country: US (occurrence: US)
  Receive Date: 20180813
  Receipt Date: 20180829
  Transmission Date: 20181010
  Serious: No
  Sender: FDA-Public Use
  Company Number: US-SA-2018SA221717

PATIENT
  Age: 73 Year
  Sex: Female

DRUGS (4)
  1. PRALUENT [Suspect]
     Active Substance: ALIROCUMAB
     Indication: LOW DENSITY LIPOPROTEIN INCREASED
     Dosage: UNK UNK, QOW
     Route: 058
     Dates: start: 20180804
  2. PRALUENT [Suspect]
     Active Substance: ALIROCUMAB
     Indication: BLOOD CHOLESTEROL
     Dosage: 75 MG, QOW
  3. ALIROCUMAB PREFILLED PEN [Suspect]
     Active Substance: ALIROCUMAB
     Indication: BLOOD CHOLESTEROL
     Dosage: 75 MG, QOW
  4. ALIROCUMAB PREFILLED PEN [Suspect]
     Active Substance: ALIROCUMAB
     Indication: LOW DENSITY LIPOPROTEIN INCREASED
     Dosage: UNK, QOW
     Route: 058
     Dates: start: 20180804

REACTIONS (4)
  - Nasopharyngitis [Unknown]
  - Rhinorrhoea [Unknown]
  - Haematochezia [Recovered/Resolved]
  - Oropharyngeal pain [Unknown]

NARRATIVE: CASE EVENT DATE: 20180806
